FAERS Safety Report 19814751 (Version 1)
Quarter: 2021Q3

REPORT INFORMATION
  Report Type: Spontaneous
  Country: US (occurrence: US)
  Receive Date: 20210907
  Receipt Date: 20210907
  Transmission Date: 20211014
  Serious: No
  Sender: FDA-Public Use
  Company Number: None

PATIENT
  Age: 49 Year
  Sex: Male
  Weight: 159.21 kg

DRUGS (1)
  1. APREMILAST (APREMILAST 30MG TAB) [Suspect]
     Active Substance: APREMILAST
     Indication: PSORIASIS
     Route: 048
     Dates: start: 20210112, end: 20210202

REACTIONS (2)
  - Depression [None]
  - Hallucination [None]

NARRATIVE: CASE EVENT DATE: 20210202
